FAERS Safety Report 4640714-1 (Version None)
Quarter: 2005Q2

REPORT INFORMATION
  Report Type: 
  Country: None (occurrence: None)
  Receive Date: 20050325
  Receipt Date: 20040603
  Transmission Date: 20051028
  Serious: Yes (Life-Threatening, Other)
  Sender: FDA-Public Use
  Company Number: 2004-02492

PATIENT
  Age: 38 Year
  Sex: Male
  Weight: 51 kg

DRUGS (2)
  1. FERRLECIT [Suspect]
     Indication: IRON DEFICIENCY ANAEMIA
     Dosage: 125 MG, SINGLE, INTRAVENOUS
     Route: 042
     Dates: start: 20040518, end: 20040518
  2. EPOGEN [Concomitant]

REACTIONS (6)
  - HYPERSENSITIVITY [None]
  - PRURITUS [None]
  - RASH [None]
  - RESPIRATORY DISTRESS [None]
  - SWELLING FACE [None]
  - SWOLLEN TONGUE [None]
